FAERS Safety Report 4503877-4 (Version None)
Quarter: 2004Q4

REPORT INFORMATION
  Report Type: 
  Country: None (occurrence: None)
  Receive Date: 20041115
  Receipt Date: 20041102
  Transmission Date: 20050328
  Serious: Yes (Hospitalization)
  Sender: FDA-Public Use
  Company Number: 2004080084

PATIENT
  Age: 66 Year
  Sex: Male
  Weight: 57 kg

DRUGS (7)
  1. VFEND [Suspect]
     Indication: BRONCHOPULMONARY ASPERGILLOSIS
     Dosage: SEE IMAGE
     Route: 042
     Dates: start: 20040101, end: 20040801
  2. VFEND [Suspect]
     Indication: BRONCHOPULMONARY ASPERGILLOSIS
     Dosage: SEE IMAGE
     Route: 042
     Dates: start: 20040827, end: 20040906
  3. DIGOXIN [Concomitant]
  4. ALIMEMAZINE TARTRATE (ALIMEMAZINE TARTRATE) [Concomitant]
  5. METRONIDAZOLE [Concomitant]
  6. TIOTROPIUM BROMIDE (TITROPIUM BROMIDE) [Concomitant]
  7. SALMETEROL XINAFOATE (SALMETEROL XINAFOATE) [Concomitant]

REACTIONS (2)
  - INAPPROPRIATE ANTIDIURETIC HORMONE SECRETION [None]
  - SYNCOPE [None]
